FAERS Safety Report 11635374 (Version 2)
Quarter: 2015Q4

REPORT INFORMATION
  Report Type: Spontaneous
  Country: US (occurrence: US)
  Receive Date: 20151016
  Receipt Date: 20151120
  Transmission Date: 20160304
  Serious: No
  Sender: FDA-Public Use
  Company Number: US-ASTRAZENECA-2015SE97041

PATIENT
  Sex: Female

DRUGS (1)
  1. PULMICORT FLEXHALER [Suspect]
     Active Substance: BUDESONIDE
     Dosage: 180 UG, TWO PUFFS TWICE A DAY
     Route: 055
     Dates: start: 20151004

REACTIONS (2)
  - Cough [Unknown]
  - Device malfunction [Unknown]
